FAERS Safety Report 16160061 (Version 2)
Quarter: 2019Q2

REPORT INFORMATION
  Report Type: Spontaneous
  Country: JP (occurrence: JP)
  Receive Date: 20190404
  Receipt Date: 20190621
  Transmission Date: 20190711
  Serious: Yes (Hospitalization, Other)
  Sender: FDA-Public Use
  Company Number: JP-PFIZER INC-2018154741

PATIENT
  Age: 72 Year
  Sex: Female

DRUGS (1)
  1. XALKORI [Suspect]
     Active Substance: CRIZOTINIB
     Indication: LUNG NEOPLASM MALIGNANT
     Dosage: 400 MG, DAILY
     Route: 048
     Dates: start: 20180410

REACTIONS (10)
  - Vomiting [Unknown]
  - Aspartate aminotransferase increased [Recovered/Resolved]
  - Cerebral haemorrhage [Unknown]
  - Pyrexia [Unknown]
  - Renal infarct [Recovered/Resolved]
  - Diplopia [Recovered/Resolved]
  - Renal vein thrombosis [Recovered/Resolved]
  - Gastric ulcer haemorrhage [Unknown]
  - Alanine aminotransferase increased [Recovered/Resolved]
  - Neoplasm progression [Unknown]

NARRATIVE: CASE EVENT DATE: 2018
